FAERS Safety Report 19583439 (Version 1)
Quarter: 2021Q3

REPORT INFORMATION
  Report Type: Spontaneous
  Country: US (occurrence: US)
  Receive Date: 20210720
  Receipt Date: 20210720
  Transmission Date: 20211014
  Serious: Yes (Death)
  Sender: FDA-Public Use
  Company Number: None

PATIENT
  Age: 64 Year
  Sex: Male

DRUGS (1)
  1. ERLOTINIB TAB 100MG [Suspect]
     Active Substance: ERLOTINIB
     Route: 048
     Dates: start: 20210308

REACTIONS (1)
  - Death [None]

NARRATIVE: CASE EVENT DATE: 20210406
